FAERS Safety Report 7463585-7 (Version None)
Quarter: 2011Q2

REPORT INFORMATION
  Report Type: 
  Country: None (occurrence: None)
  Receive Date: 20110506
  Receipt Date: 20110427
  Transmission Date: 20111010
  Serious: Yes (Death, Hospitalization)
  Sender: FDA-Public Use
  Company Number: FR-JNJFOC-20110412155

PATIENT
  Sex: Male

DRUGS (8)
  1. NEXIUM [Suspect]
     Indication: PRODUCT USED FOR UNKNOWN INDICATION
     Route: 048
  2. CERTICAN [Suspect]
     Indication: PRODUCT USED FOR UNKNOWN INDICATION
     Route: 048
  3. DOMPERIDONE [Concomitant]
     Route: 065
  4. ACETAMINOPHEN AND TRAMADOL HCL [Suspect]
     Indication: PRODUCT USED FOR UNKNOWN INDICATION
     Route: 048
  5. TEMAZEPAM [Concomitant]
     Route: 065
  6. CIMETIDINE [Concomitant]
     Route: 065
  7. DURAGESIC-100 [Suspect]
     Indication: PRODUCT USED FOR UNKNOWN INDICATION
     Route: 062
  8. XYZAL [Suspect]
     Indication: PRODUCT USED FOR UNKNOWN INDICATION
     Route: 048

REACTIONS (6)
  - PULMONARY EMBOLISM [None]
  - NAUSEA [None]
  - DEATH [None]
  - CONFUSIONAL STATE [None]
  - VOMITING [None]
  - LARGE INTESTINE PERFORATION [None]
